FAERS Safety Report 5343773-6 (Version None)
Quarter: 2007Q2

REPORT INFORMATION
  Report Type: 
  Country: None (occurrence: None)
  Receive Date: 20070604
  Receipt Date: 20070522
  Transmission Date: 20071010
  Serious: Yes (Other)
  Sender: FDA-Public Use
  Company Number: JP-PFIZER INC-2007042511

PATIENT
  Age: 30 Year
  Sex: Female

DRUGS (2)
  1. SOLU-MEDROL [Suspect]
     Indication: OBLITERATIVE BRONCHIOLITIS
     Dosage: DAILY DOSE:500MG
     Route: 042
  2. PREDONINE [Suspect]
     Indication: OBLITERATIVE BRONCHIOLITIS
     Dosage: DAILY DOSE:40MG

REACTIONS (2)
  - ASPERGILLOSIS [None]
  - PULMONARY CAVITATION [None]
